FAERS Safety Report 14453548 (Version 3)
Quarter: 2018Q2

REPORT INFORMATION
  Report Type: Spontaneous
  Country: JP (occurrence: JP)
  Receive Date: 20180129
  Receipt Date: 20180501
  Transmission Date: 20180711
  Serious: Yes (Death, Hospitalization, Other)
  Sender: FDA-Public Use
  Company Number: JP-009507513-1705JPN002492J

PATIENT
  Age: 84 Year
  Sex: Female
  Weight: 31 kg

DRUGS (1)
  1. KEYTRUDA [Suspect]
     Active Substance: PEMBROLIZUMAB
     Indication: LUNG SQUAMOUS CELL CARCINOMA STAGE III
     Dosage: 200 MG, Q3W
     Route: 041
     Dates: start: 20170404, end: 20170427

REACTIONS (2)
  - Malignant neoplasm progression [Fatal]
  - Protein urine present [Recovered/Resolved]

NARRATIVE: CASE EVENT DATE: 20170427
